FAERS Safety Report 12497172 (Version 2)
Quarter: 2016Q3

REPORT INFORMATION
  Report Type: Spontaneous
  Country: GB (occurrence: GB)
  Receive Date: 20160624
  Receipt Date: 20160729
  Transmission Date: 20161109
  Serious: Yes (Other)
  Sender: FDA-Public Use
  Company Number: GB-ASTRAZENECA-2016SE68140

PATIENT
  Age: 53 Year
  Sex: Female
  Weight: 68 kg

DRUGS (2)
  1. VENTOLIN [Concomitant]
     Active Substance: ALBUTEROL SULFATE
     Indication: ASTHMA
     Dosage: AS REQUIRED
  2. SYMBICORT [Suspect]
     Active Substance: BUDESONIDE\FORMOTEROL FUMARATE DIHYDRATE
     Indication: ASTHMA
     Dosage: 200/6 UG WITH UNKNOWN FREQUENCY UNKNOWN
     Route: 055

REACTIONS (2)
  - Off label use [Not Recovered/Not Resolved]
  - Asthma [Recovered/Resolved]

NARRATIVE: CASE EVENT DATE: 2014
